FAERS Safety Report 9246120 (Version 1)
Quarter: 2013Q2

REPORT INFORMATION
  Report Type: Spontaneous
  Country: US (occurrence: US)
  Receive Date: 20130422
  Receipt Date: 20130422
  Transmission Date: 20140414
  Serious: No
  Sender: FDA-Public Use
  Company Number: US-TEVA-398463USA

PATIENT
  Age: 18 Year
  Sex: Female
  Weight: 53.12 kg

DRUGS (2)
  1. PLAN B ONE-STEP [Suspect]
     Indication: POST COITAL CONTRACEPTION
     Dosage: 1.5 MILLIGRAM DAILY;
     Route: 048
     Dates: start: 20130412, end: 20130412
  2. BIRTH CONTROL PILL [Concomitant]
     Indication: ACNE
     Dosage: QD
     Route: 046

REACTIONS (1)
  - Vomiting [Recovered/Resolved]
